FAERS Safety Report 5363007-6 (Version None)
Quarter: 2007Q2

REPORT INFORMATION
  Report Type: 
  Country: None (occurrence: None)
  Receive Date: 20070615
  Receipt Date: 20070605
  Transmission Date: 20071010
  Serious: Yes (Other)
  Sender: FDA-Public Use
  Company Number: GXKR2007GB04858

PATIENT
  Age: 73 Year
  Sex: Male
  Weight: 90 kg

DRUGS (5)
  1. SIMVASTATIN [Suspect]
     Indication: BLOOD CHOLESTEROL INCREASED
     Dosage: 20 MG, UNK, ORAL
     Route: 048
     Dates: start: 20040728, end: 20070421
  2. ALLOPURINOL [Concomitant]
  3. AMLODIPINE [Concomitant]
  4. SOTALOL HCL [Concomitant]
  5. WARFARIN SODIUM [Concomitant]

REACTIONS (2)
  - FATIGUE [None]
  - MYALGIA [None]
